FAERS Safety Report 21602327 (Version 6)
Quarter: 2023Q1

REPORT INFORMATION
  Report Type: Spontaneous
  Country: ES (occurrence: ES)
  Receive Date: 20221116
  Receipt Date: 20230227
  Transmission Date: 20230418
  Serious: Yes (Hospitalization, Other)
  Sender: FDA-Public Use
  Company Number: ES-PFIZER INC-202100932777

PATIENT
  Age: 23 Year
  Sex: Male

DRUGS (35)
  1. PHENYTOIN [Suspect]
     Active Substance: PHENYTOIN
     Indication: Status epilepticus
     Dosage: 800 MG, DAILY
     Route: 065
  2. PHENYTOIN [Suspect]
     Active Substance: PHENYTOIN
     Indication: Seizure
  3. METHYLPREDNISOLONE SODIUM SUCCINATE [Suspect]
     Active Substance: METHYLPREDNISOLONE SODIUM SUCCINATE
     Indication: Status epilepticus
     Dosage: 1 GM PER DAY
     Route: 065
  4. METHYLPREDNISOLONE SODIUM SUCCINATE [Suspect]
     Active Substance: METHYLPREDNISOLONE SODIUM SUCCINATE
     Indication: Seizure
     Dosage: 0.4 GRAM PER KILOGRAM, QD
     Route: 042
  5. HUMAN IMMUNOGLOBULIN G [Suspect]
     Active Substance: HUMAN IMMUNOGLOBULIN G
     Indication: Product used for unknown indication
     Dosage: 0.4 G PER KG PER DAY
     Route: 042
  6. HUMAN IMMUNOGLOBULIN G [Suspect]
     Active Substance: HUMAN IMMUNOGLOBULIN G
     Indication: Status epilepticus
  7. TOCILIZUMAB [Suspect]
     Active Substance: TOCILIZUMAB
     Indication: Seizure
     Dosage: 8 MG PER KG, DAILY
     Route: 065
  8. TOCILIZUMAB [Suspect]
     Active Substance: TOCILIZUMAB
     Indication: Status epilepticus
  9. BRIVIACT [Suspect]
     Active Substance: BRIVARACETAM
     Indication: Status epilepticus
     Dosage: 400 MG, DAILY
     Route: 065
  10. BRIVIACT [Suspect]
     Active Substance: BRIVARACETAM
     Indication: Seizure
  11. BRIVIACT [Suspect]
     Active Substance: BRIVARACETAM
     Indication: Partial seizures
  12. VIMPAT [Suspect]
     Active Substance: LACOSAMIDE
     Indication: Status epilepticus
     Dosage: 500 MG, DAILY
     Route: 065
  13. VIMPAT [Suspect]
     Active Substance: LACOSAMIDE
     Indication: Seizure
  14. VIMPAT [Suspect]
     Active Substance: LACOSAMIDE
     Indication: Partial seizures
  15. PERAMPANEL [Suspect]
     Active Substance: PERAMPANEL
     Indication: Status epilepticus
     Dosage: 12 MG, DAILY
     Route: 065
  16. PERAMPANEL [Suspect]
     Active Substance: PERAMPANEL
     Indication: Seizure
     Dosage: 20 MILLIGRAM, QD
     Route: 065
  17. PHENOBARBITAL [Suspect]
     Active Substance: PHENOBARBITAL
     Indication: Status epilepticus
     Dosage: 800 MG, DAILY
     Route: 065
  18. PHENOBARBITAL [Suspect]
     Active Substance: PHENOBARBITAL
     Indication: Seizure
  19. METHYLPREDNISOLONE [Suspect]
     Active Substance: METHYLPREDNISOLONE
     Indication: Status epilepticus
     Dosage: 0.4 GRAM PER KILOGRAM PER DAY
     Route: 042
  20. METHYLPREDNISOLONE [Suspect]
     Active Substance: METHYLPREDNISOLONE
     Indication: Seizure
  21. CLONAZEPAM [Suspect]
     Active Substance: CLONAZEPAM
     Indication: Status epilepticus
     Dosage: 3 MG, DAILY
     Route: 065
  22. CLONAZEPAM [Suspect]
     Active Substance: CLONAZEPAM
     Indication: Seizure
  23. KINERET [Suspect]
     Active Substance: ANAKINRA
     Indication: Status epilepticus
     Dosage: BID,AT DAY 28, ANAKINRA AT 5MG PER KG
     Route: 065
  24. ZONISAMIDE [Concomitant]
     Active Substance: ZONISAMIDE
     Indication: Status epilepticus
     Dosage: 200 MILLIGRAM, QD
     Route: 065
  25. ZONISAMIDE [Concomitant]
     Active Substance: ZONISAMIDE
     Indication: Seizure
     Dosage: 500 MILLIGRAM PER DAY
     Route: 065
  26. TOCILIZUMAB [Concomitant]
     Active Substance: TOCILIZUMAB
     Indication: Status epilepticus
     Dosage: QD,TOCILIZUMAB 8MG PER KG PER DAY SUCCESSIVELY
     Route: 065
  27. VALPROIC ACID [Concomitant]
     Active Substance: VALPROIC ACID
     Indication: Status epilepticus
     Dosage: 1500 MILLIGRAM, QD
     Route: 065
  28. VALPROIC ACID [Concomitant]
     Active Substance: VALPROIC ACID
     Indication: Seizure
     Dosage: 3400 MILLIGRAM, QD
     Route: 065
  29. CANNABIDIOL [Concomitant]
     Active Substance: CANNABIDIOL
     Indication: Status epilepticus
     Dosage: 10 MILLIGRAM, QD
     Route: 065
  30. CANNABIDIOL [Concomitant]
     Active Substance: CANNABIDIOL
     Indication: Seizure
  31. VALPROATE [Concomitant]
     Active Substance: VALPROIC ACID
     Indication: Status epilepticus
     Dosage: UNK
     Route: 065
  32. VALPROATE [Concomitant]
     Active Substance: VALPROIC ACID
     Indication: Seizure
  33. PERAMPANEL [Concomitant]
     Active Substance: PERAMPANEL
     Indication: Status epilepticus
     Dosage: 20 MILLIGRAM, DAILY
     Route: 065
  34. PERAMPANEL [Concomitant]
     Active Substance: PERAMPANEL
     Indication: Seizure
     Dosage: 12 MILLIGRAM, QD
     Route: 065
  35. ANAKINRA [Concomitant]
     Active Substance: ANAKINRA
     Indication: Status epilepticus
     Dosage: 5 MILLIGRAM/KILOGRAM
     Route: 065

REACTIONS (13)
  - Multiple-drug resistance [Unknown]
  - Status epilepticus [Recovered/Resolved]
  - Partial seizures [Recovering/Resolving]
  - Epilepsy [Unknown]
  - Seizure [Recovering/Resolving]
  - Partial seizures with secondary generalisation [Recovering/Resolving]
  - Neutropenia [Unknown]
  - Drug ineffective [Unknown]
  - Memory impairment [Unknown]
  - Abnormal behaviour [Unknown]
  - Drug ineffective for unapproved indication [Unknown]
  - Product use in unapproved indication [Unknown]
  - Off label use [Unknown]
